FAERS Safety Report 12304435 (Version 2)
Quarter: 2016Q2

REPORT INFORMATION
  Report Type: Spontaneous
  Country: CA (occurrence: CA)
  Receive Date: 20160426
  Receipt Date: 20160527
  Transmission Date: 20160815
  Serious: Yes (Hospitalization, Other)
  Sender: FDA-Public Use
  Company Number: CA-ABBVIE-16K-028-1610494-00

PATIENT
  Age: 29 Year
  Sex: Male

DRUGS (4)
  1. POLYSPORIN [Concomitant]
     Active Substance: BACITRACIN ZINC\POLYMYXIN B SULFATE
     Indication: FOLLICULITIS
     Route: 061
     Dates: start: 20160317
  2. CEPHALEXIN. [Concomitant]
     Active Substance: CEPHALEXIN
     Indication: PRODUCT USED FOR UNKNOWN INDICATION
     Dates: end: 20160501
  3. HUMIRA [Suspect]
     Active Substance: ADALIMUMAB
     Indication: FOLLICULITIS
     Route: 058
     Dates: start: 20140728, end: 20160407
  4. ACCUTANE [Concomitant]
     Active Substance: ISOTRETINOIN
     Indication: FOLLICULITIS
     Route: 048
     Dates: end: 20160408

REACTIONS (6)
  - Carotid artery thrombosis [Not Recovered/Not Resolved]
  - Cerebrovascular accident [Recovering/Resolving]
  - Encephalitis [Unknown]
  - Thrombotic stroke [Not Recovered/Not Resolved]
  - Syncope [Unknown]
  - Hepatic enzyme increased [Unknown]

NARRATIVE: CASE EVENT DATE: 201604
